FAERS Safety Report 5454533-X (Version None)
Quarter: 2007Q3

REPORT INFORMATION
  Report Type: 
  Country: None (occurrence: None)
  Receive Date: 20070917
  Receipt Date: 20060815
  Transmission Date: 20080115
  Serious: No
  Sender: FDA-Public Use
  Company Number: US-ASTRAZENECA-2006UW16219

PATIENT
  Age: 57 Year
  Sex: Female
  Weight: 61.2 kg

DRUGS (9)
  1. SEROQUEL [Suspect]
     Indication: DEPRESSION
     Route: 048
     Dates: start: 20060809
  2. AVANDIA [Concomitant]
  3. EMERIL [Concomitant]
  4. LIPITOR [Concomitant]
  5. NEXIUM [Concomitant]
     Route: 048
  6. TRAMADOL HCL [Concomitant]
  7. APAP TAB [Concomitant]
  8. XANAX [Concomitant]
  9. RESTLESS LEG MEDICINE [Concomitant]

REACTIONS (5)
  - DYSKINESIA [None]
  - MUSCLE SPASMS [None]
  - PAIN IN EXTREMITY [None]
  - RESTLESS LEGS SYNDROME [None]
  - SPEECH DISORDER [None]
